FAERS Safety Report 10549172 (Version 1)
Quarter: 2014Q4

REPORT INFORMATION
  Report Type: Spontaneous
  Country: US (occurrence: None)
  Receive Date: 20141016
  Receipt Date: 20141016
  Transmission Date: 20150529
  Serious: No
  Sender: FDA-Public Use
  Company Number: CABO-14004401

PATIENT
  Age: 78 Year
  Sex: Male

DRUGS (1)
  1. COMETRIQ [Suspect]
     Active Substance: CABOZANTINIB S-MALATE
     Indication: SARCOMA
     Route: 048
     Dates: start: 20140109, end: 201405

REACTIONS (8)
  - Pain [None]
  - Off label use [None]
  - Axillary mass [None]
  - Mobility decreased [None]
  - Quality of life decreased [None]
  - Local swelling [None]
  - Pleural effusion [None]
  - Diarrhoea [None]

NARRATIVE: CASE EVENT DATE: 2014
